FAERS Safety Report 21810991 (Version 1)
Quarter: 2023Q1

REPORT INFORMATION
  Report Type: Spontaneous
  Country: CA (occurrence: CA)
  Receive Date: 20230103
  Receipt Date: 20230103
  Transmission Date: 20230418
  Serious: Yes (Other)
  Sender: FDA-Public Use
  Company Number: CA-SAMSUNG BIOEPIS-SB-2022-33303

PATIENT
  Age: 33 Year
  Sex: Male
  Weight: 63 kg

DRUGS (1)
  1. INFLIXIMAB [Suspect]
     Active Substance: INFLIXIMAB
     Indication: Colitis ulcerative
     Dosage: CYCLICAL
     Route: 042

REACTIONS (6)
  - Condition aggravated [Unknown]
  - Eye infection [Unknown]
  - Eye pain [Unknown]
  - Malaise [Unknown]
  - Off label use [Unknown]
  - Intentional product use issue [Unknown]
